FAERS Safety Report 7007774-4 (Version None)
Quarter: 2010Q3

REPORT INFORMATION
  Report Type: 
  Country: None (occurrence: None)
  Receive Date: 20100922
  Receipt Date: 20100914
  Transmission Date: 20110219
  Serious: Yes (Death, Other)
  Sender: FDA-Public Use
  Company Number: JP-ROCHE-704925

PATIENT
  Sex: Male

DRUGS (10)
  1. AVASTIN [Suspect]
     Indication: LUNG ADENOCARCINOMA METASTATIC
     Dosage: FORM: INJECTION
     Route: 041
     Dates: start: 20100511, end: 20100511
  2. PACLITAXEL [Concomitant]
     Dosage: FORM: INJECTION
     Route: 041
     Dates: start: 20100511, end: 20100511
  3. PARAPLATIN [Concomitant]
     Dosage: FORM: INJECTION
     Route: 041
     Dates: start: 20100511, end: 20100511
  4. RESTAMIN [Concomitant]
     Route: 048
     Dates: start: 20100511, end: 20100511
  5. MYSLEE [Concomitant]
     Route: 048
     Dates: start: 20100511, end: 20100511
  6. CALONAL [Concomitant]
     Dosage: IRREGULARITY AND TAKEN AS NEEDED
     Route: 048
     Dates: start: 20100516, end: 20100520
  7. KETOPROFEN [Concomitant]
     Route: 062
     Dates: start: 20100512, end: 20100520
  8. RINDERON-VG [Concomitant]
     Dosage: IRREGULARITY
     Route: 062
     Dates: start: 20100517, end: 20100520
  9. TPN ELECTROLYTES IN PLASTIC CONTAINER [Concomitant]
     Route: 041
     Dates: start: 20100514, end: 20100514
  10. AMARYL [Concomitant]
     Route: 048

REACTIONS (5)
  - ASPHYXIA [None]
  - BONE MARROW FAILURE [None]
  - FEBRILE NEUTROPENIA [None]
  - HAEMOPTYSIS [None]
  - HYPOXIA [None]
